FAERS Safety Report 16668765 (Version 8)
Quarter: 2020Q2

REPORT INFORMATION
  Report Type: Report from Study
  Country: US (occurrence: US)
  Receive Date: 20190805
  Receipt Date: 20200417
  Transmission Date: 20200713
  Serious: Yes (Hospitalization)
  Sender: FDA-Public Use
  Company Number: US-ACTELION-A-US2019-193734

PATIENT
  Age: 47 Year
  Sex: Female
  Weight: 83.9 kg

DRUGS (12)
  1. OPSUMIT [Suspect]
     Active Substance: MACITENTAN
     Indication: PULMONARY ARTERIAL HYPERTENSION
     Dosage: 10 MG, QD
     Route: 048
     Dates: start: 20170321
  2. ADEMPAS [Suspect]
     Active Substance: RIOCIGUAT
     Dosage: 2.5 MG
     Route: 065
  3. ESCITALOPRAM [Concomitant]
     Active Substance: ESCITALOPRAM OXALATE
  4. OMEPRAZOLE. [Concomitant]
     Active Substance: OMEPRAZOLE
  5. ADEMPAS [Suspect]
     Active Substance: RIOCIGUAT
     Dosage: 1 MG, TID
     Route: 048
     Dates: start: 20191129
  6. FUROSEMIDE. [Concomitant]
     Active Substance: FUROSEMIDE
  7. SPIRONOLACTONE. [Concomitant]
     Active Substance: SPIRONOLACTONE
  8. ALPRAZOLAM. [Concomitant]
     Active Substance: ALPRAZOLAM
  9. ASPIRIN. [Concomitant]
     Active Substance: ASPIRIN
  10. ADEMPAS [Suspect]
     Active Substance: RIOCIGUAT
     Indication: PRODUCT USED FOR UNKNOWN INDICATION
     Dosage: UNK
     Route: 065
  11. CLINDAMYCIN. [Concomitant]
     Active Substance: CLINDAMYCIN
  12. SILDENAFIL. [Concomitant]
     Active Substance: SILDENAFIL

REACTIONS (12)
  - Dyspnoea [Recovering/Resolving]
  - Oedema peripheral [Unknown]
  - Hip arthroplasty [Unknown]
  - Hypotension [Unknown]
  - Hospitalisation [Unknown]
  - Haemorrhage [Unknown]
  - Oesophagitis [Unknown]
  - Energy increased [Unknown]
  - Gastrooesophageal reflux disease [Recovered/Resolved]
  - Surgery [Unknown]
  - Haematoma [Unknown]
  - Dyspepsia [Not Recovered/Not Resolved]

NARRATIVE: CASE EVENT DATE: 20190714
